FAERS Safety Report 5177934-6 (Version None)
Quarter: 2006Q4

REPORT INFORMATION
  Report Type: 
  Country: None (occurrence: None)
  Receive Date: 20061208
  Receipt Date: 20061128
  Transmission Date: 20070319
  Serious: Yes (Other)
  Sender: FDA-Public Use
  Company Number: 2006148183

PATIENT
  Sex: 0

DRUGS (3)
  1. DIFLUCAN [Suspect]
     Indication: ANTIFUNGAL PROPHYLAXIS
     Dosage: 100 MG, ORAL
     Route: 048
     Dates: start: 20061001
  2. ZANTAC [Concomitant]
  3. ALLOPURINOL [Concomitant]

REACTIONS (1)
  - PANCYTOPENIA [None]
